FAERS Safety Report 6457377-5 (Version None)
Quarter: 2009Q4

REPORT INFORMATION
  Report Type: 
  Country: None (occurrence: None)
  Receive Date: 20091125
  Receipt Date: 20091118
  Transmission Date: 20100525
  Serious: Yes (Hospitalization, Other)
  Sender: FDA-Public Use
  Company Number: US-MERCK-0907USA02549

PATIENT
  Age: 59 Year
  Sex: Female
  Weight: 67 kg

DRUGS (6)
  1. FOSAMAX [Suspect]
     Indication: OSTEOPENIA
     Route: 048
     Dates: start: 19951101, end: 19981101
  2. FOSAMAX [Suspect]
     Route: 048
     Dates: start: 19981201, end: 20070101
  3. FOSAMAX [Suspect]
     Route: 048
     Dates: start: 20080101, end: 20080701
  4. FOSAMAX [Suspect]
     Route: 048
     Dates: start: 20021201, end: 20021201
  5. FOSAMAX [Suspect]
     Route: 048
     Dates: start: 20061201, end: 20080801
  6. ESTROGENS (UNSPECIFIED) [Concomitant]
     Route: 065
     Dates: start: 19900101

REACTIONS (24)
  - BASAL CELL CARCINOMA [None]
  - BENIGN NEOPLASM OF THYROID GLAND [None]
  - BONE DENSITY INCREASED [None]
  - BURSITIS [None]
  - DEPRESSION [None]
  - DYSTHYMIC DISORDER [None]
  - FEMUR FRACTURE [None]
  - FRACTURE NONUNION [None]
  - HAEMATURIA [None]
  - HYPERLIPIDAEMIA [None]
  - INFLUENZA LIKE ILLNESS [None]
  - LACRIMATION DECREASED [None]
  - LOW TURNOVER OSTEOPATHY [None]
  - LUNG NEOPLASM [None]
  - MIGRAINE [None]
  - ONYCHOMYCOSIS [None]
  - OSTEOPOROSIS [None]
  - PANCREATIC CYST [None]
  - RADICULITIS [None]
  - RASH [None]
  - RIB FRACTURE [None]
  - SLEEP DISORDER [None]
  - TENDONITIS [None]
  - THYROID NEOPLASM [None]
